FAERS Safety Report 14642946 (Version 3)
Quarter: 2018Q2

REPORT INFORMATION
  Report Type: Spontaneous
  Country: US (occurrence: BR)
  Receive Date: 20180315
  Receipt Date: 20180612
  Transmission Date: 20180711
  Serious: Yes (Other)
  Sender: FDA-Public Use
  Company Number: US-SUNOVION-2018SUN000920

PATIENT
  Sex: Male
  Weight: 70 kg

DRUGS (15)
  1. OLCADIL [Suspect]
     Active Substance: CLOXAZOLAM
     Indication: STRESS
  2. FRONTAL [Suspect]
     Active Substance: ALPRAZOLAM
     Indication: PRODUCT USED FOR UNKNOWN INDICATION
     Dosage: UNK, REGIMEN #1
     Route: 065
  3. RIVOTRIL [Suspect]
     Active Substance: CLONAZEPAM
     Indication: PRODUCT USED FOR UNKNOWN INDICATION
     Dosage: UNK
     Route: 065
  4. SERETIDE [Suspect]
     Active Substance: FLUTICASONE PROPIONATE\SALMETEROL XINAFOATE
     Indication: EMPHYSEMA
     Dosage: UNK, REGIMEN #1
  5. LORAX [Suspect]
     Active Substance: LORAZEPAM
     Indication: PRODUCT USED FOR UNKNOWN INDICATION
     Dosage: UNK
     Route: 065
  6. OLCADIL [Suspect]
     Active Substance: CLOXAZOLAM
     Indication: EMOTIONAL DISORDER
     Dosage: UNK
  7. FRONTAL [Suspect]
     Active Substance: ALPRAZOLAM
     Route: 065
  8. INDACATEROL AND GLYCOPYRROLATE [Suspect]
     Active Substance: GLYCOPYRROLATE\INDACATEROL MALEATE
     Indication: EMPHYSEMA
     Dosage: UNK, REGIMEN #1
     Route: 055
  9. GLYCOPYRROLATE. [Suspect]
     Active Substance: GLYCOPYRROLATE
     Indication: PRODUCT USED FOR UNKNOWN INDICATION
     Dosage: UNK, REGIMEN #1
     Route: 055
  10. OLCADIL [Suspect]
     Active Substance: CLOXAZOLAM
     Indication: STRESS
     Dosage: 1 DF (2 MG), HS (WHEN EPISODES GET OUT OF CONTROL HE USED 1 IN THE MORNING AND 1 IN THE EVENING)
     Route: 048
  11. OLCADIL [Suspect]
     Active Substance: CLOXAZOLAM
     Indication: EMOTIONAL DISORDER
  12. OLCADIL [Suspect]
     Active Substance: CLOXAZOLAM
     Indication: HEADACHE
     Dosage: UNK
  13. OLCADIL [Suspect]
     Active Substance: CLOXAZOLAM
     Indication: HEADACHE
  14. LEXOTAN [Suspect]
     Active Substance: BROMAZEPAM
     Indication: PRODUCT USED FOR UNKNOWN INDICATION
     Dosage: UNK
     Route: 065
  15. SERETIDE [Suspect]
     Active Substance: FLUTICASONE PROPIONATE\SALMETEROL XINAFOATE
     Dosage: UNK
     Route: 065

REACTIONS (15)
  - Chronic obstructive pulmonary disease [Not Recovered/Not Resolved]
  - Chest discomfort [Not Recovered/Not Resolved]
  - Arrhythmia [Unknown]
  - Product outer packaging issue [Unknown]
  - Product physical issue [Unknown]
  - Chronic gastritis [Unknown]
  - Emotional disorder [Not Recovered/Not Resolved]
  - Lung disorder [Unknown]
  - Aortic aneurysm [Unknown]
  - Drug ineffective [Unknown]
  - Asthma [Not Recovered/Not Resolved]
  - Autonomic nervous system imbalance [Not Recovered/Not Resolved]
  - Migraine [Not Recovered/Not Resolved]
  - Headache [Not Recovered/Not Resolved]
  - Rebound effect [Not Recovered/Not Resolved]
